FAERS Safety Report 4358398-9 (Version None)
Quarter: 2004Q3

REPORT INFORMATION
  Report Type: 
  Country: None (occurrence: None)
  Receive Date: 20040511
  Receipt Date: 20040430
  Transmission Date: 20050211
  Serious: Yes (Hospitalization)
  Sender: FDA-Public Use
  Company Number: K200400656

PATIENT
  Age: 75 Year
  Sex: Female
  Weight: 87 kg

DRUGS (11)
  1. ALTACE [Suspect]
     Dosage: ORAL
     Route: 048
     Dates: start: 20031218, end: 20031229
  2. LEVOFLOXACIN [Suspect]
     Indication: PNEUMONIA
     Dosage: SEE IMAGE, ORAL
     Route: 048
     Dates: start: 20031219, end: 20031220
  3. LEVOFLOXACIN [Suspect]
     Indication: PNEUMONIA
     Dosage: SEE IMAGE, ORAL
     Route: 048
     Dates: start: 20031221, end: 20031226
  4. OFLOXACIN [Suspect]
     Indication: PNEUMONIA
     Dosage: INTRAVENOUS
     Route: 042
     Dates: start: 20031215, end: 20031219
  5. AUGMENTIN [Concomitant]
  6. ROCEPHIN [Concomitant]
  7. OMEPRAZOLE [Concomitant]
  8. DIGOXIN [Concomitant]
  9. CORDARONE [Concomitant]
  10. PREVISCAN (FLUINDIONE) [Concomitant]
  11. FRAXIPARINE (HEPARIN-FRACTION, CALCIUM SALT) [Concomitant]

REACTIONS (6)
  - DIARRHOEA [None]
  - DRUG TOXICITY [None]
  - ENTEROBACTER INFECTION [None]
  - GASTROENTERITIS STAPHYLOCOCCAL [None]
  - PYELONEPHRITIS [None]
  - RENAL FAILURE ACUTE [None]
